FAERS Safety Report 9278970 (Version 1)
Quarter: 2013Q2

REPORT INFORMATION
  Report Type: Spontaneous
  Country: US (occurrence: None)
  Receive Date: 20130506
  Receipt Date: 20130506
  Transmission Date: 20140414
  Serious: No
  Sender: FDA-Public Use
  Company Number: None

PATIENT
  Age: 62 Year
  Sex: Male
  Weight: 95.9 kg

DRUGS (1)
  1. IODINE [Suspect]
     Indication: DEEP VEIN THROMBOSIS
     Dates: start: 20130424, end: 20130424

REACTIONS (4)
  - Pruritus [None]
  - Urticaria [None]
  - Angioedema [None]
  - Rash [None]
